FAERS Safety Report 6672478-4 (Version None)
Quarter: 2010Q2

REPORT INFORMATION
  Report Type: 
  Country: None (occurrence: None)
  Receive Date: 20100408
  Receipt Date: 20100331
  Transmission Date: 20101027
  Serious: Yes (Life-Threatening, Hospitalization)
  Sender: FDA-Public Use
  Company Number: TR-ELI_LILLY_AND_COMPANY-TR201004000010

PATIENT
  Sex: Male
  Weight: 82 kg

DRUGS (12)
  1. PEMETREXED [Suspect]
     Indication: NON-SMALL CELL LUNG CANCER
     Dosage: 500 MG/M2, DAY 1 EVERY 21 DAYS
     Route: 042
     Dates: start: 20100329
  2. CISPLATIN [Suspect]
     Indication: NON-SMALL CELL LUNG CANCER
     Dosage: 75 MG/M2, DAY 1 EVERY 21 DAYS
     Route: 042
     Dates: start: 20100329
  3. FOLIC ACID [Concomitant]
     Indication: PROPHYLAXIS
     Dates: start: 20100324
  4. VITAMIN B-12 [Concomitant]
     Indication: PROPHYLAXIS
     Dates: start: 20100324, end: 20100324
  5. DEXAMETHASONE [Concomitant]
     Indication: PROPHYLAXIS
     Dates: start: 20100328, end: 20100330
  6. GLIMEPIRIDE [Concomitant]
     Indication: DIABETES MELLITUS
     Dates: start: 20030101, end: 20100325
  7. METFORMIN HYDROCHLORIDE [Concomitant]
     Indication: DIABETES MELLITUS
     Dates: start: 20030101, end: 20100325
  8. IRBESARTAN [Concomitant]
     Indication: HYPERTENSION
     Dates: start: 20070101
  9. METOPROLOL /00376902/ [Concomitant]
     Indication: HYPERTENSION
     Dates: start: 20070101
  10. LEVOTHYROXINE SODIUM [Concomitant]
     Indication: THYROIDECTOMY
     Dosage: UNK, UNK
     Dates: start: 20070101
  11. INSULIN ZINC SUSPENSION (CRYSTALLINE) [Concomitant]
     Indication: DIABETES MELLITUS
     Dates: start: 20100325
  12. NPH INSULIN [Concomitant]
     Indication: DIABETES MELLITUS
     Dates: start: 20100325

REACTIONS (1)
  - PULMONARY EMBOLISM [None]
